FAERS Safety Report 24361273 (Version 1)
Quarter: 2024Q3

REPORT INFORMATION
  Report Type: Spontaneous
  Country: US (occurrence: US)
  Receive Date: 20240925
  Receipt Date: 20240925
  Transmission Date: 20241017
  Serious: No
  Sender: MERCK
  Company Number: US-009507513-2409USA003576

PATIENT
  Sex: Female

DRUGS (2)
  1. JANUVIA [Suspect]
     Active Substance: SITAGLIPTIN PHOSPHATE
  2. ENTRESTO [Suspect]
     Active Substance: SACUBITRIL\VALSARTAN

REACTIONS (3)
  - Fall [Unknown]
  - Swelling face [Unknown]
  - Eye swelling [Unknown]
